FAERS Safety Report 9382378 (Version 1)
Quarter: 2013Q3

REPORT INFORMATION
  Report Type: Spontaneous
  Country: US (occurrence: US)
  Receive Date: 20130703
  Receipt Date: 20130703
  Transmission Date: 20140515
  Serious: Yes (Other)
  Sender: FDA-Public Use
  Company Number: US-BRISTOL-MYERS SQUIBB COMPANY-19069616

PATIENT
  Age: 29 Year
  Sex: Female
  Weight: 190 kg

DRUGS (2)
  1. ABILIFY TABS [Suspect]
     Dosage: THERAPY TO JUN2013.
     Dates: start: 201306
  2. ABILIFY INJECTION [Suspect]
     Dosage: SINGLE.THERAPY TO JUN2013
     Route: 030
     Dates: start: 201306

REACTIONS (6)
  - Asthma [Not Recovered/Not Resolved]
  - Pain in extremity [Not Recovered/Not Resolved]
  - Blepharospasm [Not Recovered/Not Resolved]
  - Disorientation [Not Recovered/Not Resolved]
  - Somnolence [Not Recovered/Not Resolved]
  - Increased appetite [Not Recovered/Not Resolved]
